FAERS Safety Report 9458194 (Version 3)
Quarter: 2013Q4

REPORT INFORMATION
  Report Type: Spontaneous
  Country: FR (occurrence: FR)
  Receive Date: 20130814
  Receipt Date: 20131030
  Transmission Date: 20140711
  Serious: Yes (Hospitalization)
  Sender: FDA-Public Use
  Company Number: FR-SANOFI-AVENTIS-2013SA080488

PATIENT
  Age: 79 Year
  Sex: Male
  Weight: 65 kg

DRUGS (10)
  1. APROVEL [Suspect]
     Indication: HYPERTENSION
     Dosage: IN MORNING
     Route: 048
     Dates: start: 20130718, end: 20130809
  2. COAPROVEL [Suspect]
     Indication: HYPERTENSION
     Route: 048
     Dates: end: 20130718
  3. HALDOL [Suspect]
     Indication: ANXIETY
     Dosage: STRENGTH: 2MG/ML?DOSE:4-10 DROPS IN EVENING
     Route: 048
     Dates: end: 20130723
  4. HALDOL [Suspect]
     Indication: HYPOCHONDRIASIS
     Dosage: STRENGTH: 2MG/ML?DOSE:4-10 DROPS IN EVENING
     Route: 048
     Dates: end: 20130723
  5. LAROXYL [Concomitant]
  6. FORLAX [Concomitant]
  7. XANAX [Concomitant]
     Indication: ANXIETY
     Route: 048
  8. PARACETAMOL [Concomitant]
     Indication: PAIN
     Route: 048
  9. IMOVANE [Concomitant]
     Indication: DEPRESSION
     Route: 048
  10. PULMICORT [Concomitant]
     Indication: CHRONIC OBSTRUCTIVE PULMONARY DISEASE

REACTIONS (4)
  - Depression [Unknown]
  - Hyponatraemia [Recovering/Resolving]
  - Blood osmolarity decreased [Recovering/Resolving]
  - Malaise [Unknown]
